FAERS Safety Report 7153003-0 (Version None)
Quarter: 2010Q4

REPORT INFORMATION
  Report Type: 
  Country: None (occurrence: None)
  Receive Date: 20101213
  Receipt Date: 20101130
  Transmission Date: 20110411
  Serious: Yes (Other)
  Sender: FDA-Public Use
  Company Number: US-ELI_LILLY_AND_COMPANY-US201009007089

PATIENT
  Sex: Female

DRUGS (6)
  1. FORTEO [Suspect]
     Indication: OSTEOPOROSIS
     Dosage: 20 UG, DAILY (1/D)
     Route: 058
     Dates: start: 20100716, end: 20100921
  2. CALCIUM [Concomitant]
  3. VITAMIN D [Concomitant]
  4. MICARDIS [Concomitant]
  5. FUROSEMIDE [Concomitant]
  6. ASPIRIN [Concomitant]

REACTIONS (3)
  - HAEMORRHAGE [None]
  - MALIGNANT FIBROUS HISTIOCYTOMA [None]
  - METASTASES TO LUNG [None]
